FAERS Safety Report 9614084 (Version 2)
Quarter: 2014Q2

REPORT INFORMATION
  Report Type: Report from Study
  Country: JP (occurrence: JP)
  Receive Date: 20131011
  Receipt Date: 20140530
  Transmission Date: 20141212
  Serious: Yes (Death)
  Sender: FDA-Public Use
  Company Number: JP-ROCHE-1283912

PATIENT
  Age: 75 Year
  Sex: Male

DRUGS (9)
  1. METHOXY POLYETHYLENE GLYCOL-EPOETIN BETA [Suspect]
     Indication: NEPHROGENIC ANAEMIA
     Route: 058
     Dates: start: 20130206, end: 20130304
  2. SODIUM BICARBONATE [Concomitant]
     Route: 048
  3. MICARDIS [Concomitant]
     Indication: PROPHYLAXIS
     Route: 048
  4. LASIX [Concomitant]
     Route: 048
  5. CRESTOR [Concomitant]
     Route: 048
  6. PREDONINE [Concomitant]
     Route: 048
  7. ITOROL [Concomitant]
     Route: 048
  8. SIGMART [Concomitant]
     Route: 048
  9. TAKEPRON [Concomitant]
     Indication: PROPHYLAXIS
     Route: 048

REACTIONS (2)
  - Myelodysplastic syndrome [Fatal]
  - Renal failure [Fatal]
